FAERS Safety Report 25240429 (Version 1)
Quarter: 2025Q2

REPORT INFORMATION
  Report Type: Spontaneous
  Country: US (occurrence: US)
  Receive Date: 20250425
  Receipt Date: 20250425
  Transmission Date: 20250716
  Serious: Yes (Hospitalization)
  Sender: ACCORD
  Company Number: US-Accord-480813

PATIENT
  Age: 70 Year
  Sex: Male

DRUGS (1)
  1. HYDROXYCHLOROQUINE [Suspect]
     Active Substance: HYDROXYCHLOROQUINE
     Indication: Systemic lupus erythematosus

REACTIONS (6)
  - Cardiac failure [Recovered/Resolved]
  - Atrioventricular block second degree [Recovered/Resolved]
  - Coronary artery disease [Recovered/Resolved]
  - Left ventricular hypertrophy [Recovered/Resolved]
  - Diastolic dysfunction [Recovered/Resolved]
  - Cardiomyopathy [Recovered/Resolved]
